FAERS Safety Report 8472521-6 (Version None)
Quarter: 2012Q2

REPORT INFORMATION
  Report Type: 
  Country: None (occurrence: None)
  Receive Date: 20120627
  Receipt Date: 20120109
  Transmission Date: 20120825
  Serious: No
  Sender: FDA-Public Use
  Company Number: US-AMGEN-USASP2012001661

PATIENT
  Age: 89 Year
  Sex: Female
  Weight: 41 kg

DRUGS (2)
  1. PROLIA [Suspect]
     Indication: OSTEOPOROSIS POSTMENOPAUSAL
     Dosage: UNK UNK, Q6MO
     Route: 058
     Dates: start: 20110822
  2. PROCRIT [Suspect]
     Indication: ANAEMIA
     Dosage: UNK
     Route: 058
     Dates: start: 20110808

REACTIONS (3)
  - TRICHORRHEXIS [None]
  - ALOPECIA [None]
  - ANXIETY [None]
